FAERS Safety Report 12923866 (Version 2)
Quarter: 2017Q1

REPORT INFORMATION
  Report Type: Spontaneous
  Country: US (occurrence: US)
  Receive Date: 20161108
  Receipt Date: 20170203
  Transmission Date: 20170428
  Serious: Yes (Other)
  Sender: FDA-Public Use
  Company Number: US-TEVA-710490USA

PATIENT
  Age: 74 Year
  Sex: Male
  Weight: 103.87 kg

DRUGS (16)
  1. ILEVRO [Concomitant]
     Active Substance: NEPAFENAC
  2. LISINOPRIL. [Concomitant]
     Active Substance: LISINOPRIL
     Route: 048
  3. PREDNISONE. [Concomitant]
     Active Substance: PREDNISONE
     Indication: BRONCHITIS
     Dosage: 60 MILLIGRAM DAILY; 3 TABLETS
     Route: 048
  4. TAMSULOSIN [Concomitant]
     Active Substance: TAMSULOSIN
     Route: 048
  5. HYDROCODONE-ACETAMINOPHEN [Concomitant]
     Active Substance: ACETAMINOPHEN\HYDROCODONE
     Dosage: 5-325MG
  6. MIDODRINE [Concomitant]
     Active Substance: MIDODRINE
     Route: 048
  7. BENZONATATE. [Concomitant]
     Active Substance: BENZONATATE
     Indication: COUGH
  8. FLUDROCORTISONE [Concomitant]
     Active Substance: FLUDROCORTISONE
  9. MECLIZINE [Concomitant]
     Active Substance: MECLIZINE HYDROCHLORIDE
     Dosage: AS NEEDED
     Route: 048
  10. FINASTERIDE. [Suspect]
     Active Substance: FINASTERIDE
     Route: 065
  11. LEVOTHYROXINE. [Concomitant]
     Active Substance: LEVOTHYROXINE
  12. LORAZEPAM. [Concomitant]
     Active Substance: LORAZEPAM
     Dosage: AS NEEDED
     Route: 048
  13. MAGNESIUM OXIDE. [Concomitant]
     Active Substance: MAGNESIUM OXIDE
     Route: 048
  14. BENZONATATE. [Concomitant]
     Active Substance: BENZONATATE
     Indication: BRONCHITIS
     Dosage: TAKE 1 TO 2 AS NEEDED
  15. METOPROLOL. [Concomitant]
     Active Substance: METOPROLOL
     Route: 048
  16. PANTOPRAZOLE [Concomitant]
     Active Substance: PANTOPRAZOLE SODIUM
     Route: 048

REACTIONS (6)
  - Chest wall haematoma [Unknown]
  - Pain [Unknown]
  - Breast mass [Unknown]
  - Gynaecomastia [Unknown]
  - Hyperplasia [Unknown]
  - Breast mass [Unknown]

NARRATIVE: CASE EVENT DATE: 2016
